FAERS Safety Report 14297009 (Version 2)
Quarter: 2018Q1

REPORT INFORMATION
  Report Type: Spontaneous
  Country: FR (occurrence: FR)
  Receive Date: 20171218
  Receipt Date: 20180129
  Transmission Date: 20180509
  Serious: Yes (Death, Other)
  Sender: FDA-Public Use
  Company Number: FR-GLAXOSMITHKLINE-FR2017190607

PATIENT
  Age: 90 Year
  Sex: Female
  Weight: 58 kg

DRUGS (3)
  1. AMLOR [Concomitant]
     Active Substance: AMLODIPINE BESYLATE
     Indication: PRODUCT USED FOR UNKNOWN INDICATION
     Dosage: 10 MG, UNK
     Route: 048
  2. LAMICTAL [Suspect]
     Active Substance: LAMOTRIGINE
     Indication: EPILEPSY
     Dosage: UNKNOWN
     Route: 048
  3. BISOCE [Concomitant]
     Active Substance: BISOPROLOL
     Indication: HYPERTENSION
     Dosage: 5 MG, UNK
     Route: 048

REACTIONS (5)
  - Toxic epidermal necrolysis [Fatal]
  - Rash [Fatal]
  - Dermatitis exfoliative generalised [Fatal]
  - Dermatitis bullous [Fatal]
  - Toxic epidermal necrolysis [Fatal]

NARRATIVE: CASE EVENT DATE: 201711
